FAERS Safety Report 6729040-4 (Version None)
Quarter: 2010Q2

REPORT INFORMATION
  Report Type: 
  Country: None (occurrence: None)
  Receive Date: 20100517
  Receipt Date: 20100401
  Transmission Date: 20101027
  Serious: No
  Sender: FDA-Public Use
  Company Number: US-ABBOTT-10P-163-0636634-00

PATIENT
  Sex: Female
  Weight: 77.18 kg

DRUGS (1)
  1. SIMCOR [Suspect]
     Indication: LOW DENSITY LIPOPROTEIN INCREASED
     Dosage: 1 - 500/20 MG TAB DAILY
     Dates: start: 20100301

REACTIONS (4)
  - FLUSHING [None]
  - HEADACHE [None]
  - MYALGIA [None]
  - PARAESTHESIA [None]
